FAERS Safety Report 20868594 (Version 1)
Quarter: 2022Q2

REPORT INFORMATION
  Report Type: Spontaneous
  Country: US (occurrence: None)
  Receive Date: 20220524
  Receipt Date: 20220524
  Transmission Date: 20220721
  Serious: Yes (Life-Threatening, Other)
  Sender: FDA-Public Use
  Company Number: None

PATIENT
  Age: 39 Year
  Sex: Female
  Weight: 95.53 kg

DRUGS (1)
  1. DESVENLAFAXINE SUCCINATE [Suspect]
     Active Substance: DESVENLAFAXINE SUCCINATE
     Indication: Drug rehabilitation
     Dosage: ONCE TABLET ONCE A DAY
     Route: 048

REACTIONS (8)
  - Chest pain [None]
  - Suicidal ideation [None]
  - Depression [None]
  - Panic attack [None]
  - Palpitations [None]
  - Dizziness [None]
  - Tremor [None]
  - Product substitution issue [None]

NARRATIVE: CASE EVENT DATE: 20180328
